FAERS Safety Report 4616020-8 (Version None)
Quarter: 2005Q1

REPORT INFORMATION
  Report Type: 
  Country: None (occurrence: None)
  Receive Date: 20050318
  Receipt Date: 20050302
  Transmission Date: 20050727
  Serious: Yes (Death)
  Sender: FDA-Public Use
  Company Number: 212498

PATIENT
  Sex: Male

DRUGS (5)
  1. MABTHERA(RITUXIMAB) CONC FOR SOLUTION FOR INFUSION [Suspect]
     Indication: LYMPHOMA
     Dosage: INTRAVENOUS
     Route: 042
     Dates: start: 20010123
  2. DIAMICRON (GLICLAZIDE) [Concomitant]
  3. AMIODARONE HCL [Concomitant]
  4. LANOXIN [Concomitant]
  5. ALLOPURINOL [Concomitant]

REACTIONS (1)
  - PNEUMONIA [None]
